FAERS Safety Report 9712492 (Version 1)
Quarter: 2013Q4

REPORT INFORMATION
  Report Type: Spontaneous
  Country: US (occurrence: US)
  Receive Date: 20131126
  Receipt Date: 20131126
  Transmission Date: 20140711
  Serious: No
  Sender: FDA-Public Use
  Company Number: US-BRISTOL-MYERS SQUIBB COMPANY-19188739

PATIENT
  Age: 63 Year
  Sex: Female
  Weight: 88.43 kg

DRUGS (4)
  1. BYDUREON [Suspect]
     Indication: TYPE 2 DIABETES MELLITUS
  2. METFORMIN HCL [Suspect]
     Route: 048
  3. NOVOLOG [Suspect]
  4. LANTUS [Suspect]

REACTIONS (2)
  - Injection site nodule [Not Recovered/Not Resolved]
  - Blood glucose increased [Recovering/Resolving]
